FAERS Safety Report 10228901 (Version 2)
Quarter: 2014Q2

REPORT INFORMATION
  Report Type: Spontaneous
  Country: US (occurrence: US)
  Receive Date: 20140610
  Receipt Date: 20140610
  Transmission Date: 20141212
  Serious: Yes (Death, Hospitalization)
  Sender: FDA-Public Use
  Company Number: US-GLAXOSMITHKLINE-A0832320A

PATIENT
  Age: 60 Year
  Sex: Male
  Weight: 97.3 kg

DRUGS (1)
  1. AVANDIA [Suspect]
     Indication: INSULIN-REQUIRING TYPE 2 DIABETES MELLITUS
     Dosage: 4MG PER DAY
     Route: 048
     Dates: start: 2000, end: 200802

REACTIONS (4)
  - Insulin-requiring type 2 diabetes mellitus [Fatal]
  - Myocardial infarction [Unknown]
  - Cardio-respiratory arrest [Unknown]
  - Coronary artery disease [Unknown]
